FAERS Safety Report 9739095 (Version 1)
Quarter: 2013Q4

REPORT INFORMATION
  Report Type: Spontaneous
  Country: GB (occurrence: GB)
  Receive Date: 20131209
  Receipt Date: 20131209
  Transmission Date: 20140711
  Serious: Yes (Life-Threatening, Hospitalization)
  Sender: FDA-Public Use
  Company Number: GB-ASTRAZENECA-2013SE89448

PATIENT
  Age: 61 Year
  Sex: Male
  Weight: 70 kg

DRUGS (14)
  1. OMEPRAZOLE [Suspect]
     Indication: GASTROOESOPHAGEAL REFLUX DISEASE
     Route: 048
     Dates: start: 20080301, end: 20100508
  2. ADALAT LA [Concomitant]
  3. ANTIHYPERTENSIVES [Concomitant]
     Indication: HYPERTENSION
     Dates: start: 2007, end: 2008
  4. ASPIRIN [Concomitant]
  5. BETAMETHASONE VALERATE [Concomitant]
     Route: 061
  6. EZETIMIBE AND SIMVASTATIN [Concomitant]
  7. FEXOFENADINE HYDROCHLORIDE [Concomitant]
  8. INSULATARD PORCINE [Concomitant]
  9. LEVOTHYROXINE SODIUM [Concomitant]
  10. METFORMINE [Concomitant]
  11. NOVORAPID [Concomitant]
  12. QUININE SULPHATE [Concomitant]
  13. RAMIPRIL [Concomitant]
  14. MEDICINE FOR REDUCING BODY FLUID [Concomitant]

REACTIONS (1)
  - Renal failure acute [Recovered/Resolved with Sequelae]
